FAERS Safety Report 7632360-2 (Version None)
Quarter: 2011Q3

REPORT INFORMATION
  Report Type: 
  Country: None (occurrence: None)
  Receive Date: 20110725
  Receipt Date: 20100831
  Transmission Date: 20111222
  Serious: No
  Sender: FDA-Public Use
  Company Number: US-BRISTOL-MYERS SQUIBB COMPANY-15242282

PATIENT
  Age: 76 Year
  Sex: Female

DRUGS (10)
  1. COUMADIN [Suspect]
     Indication: ATRIAL FIBRILLATION
     Dosage: RECEIVED 4 YEARS AGO, STOPPED AND STARTED IN ,MAY-2010
     Route: 048
     Dates: start: 20100611, end: 20100801
  2. TOPROL-XL [Concomitant]
  3. ATIVAN [Concomitant]
  4. ASPIRIN [Concomitant]
  5. PLAVIX [Concomitant]
  6. NORVASC [Concomitant]
  7. ACCUPRIL [Concomitant]
  8. ZOCOR [Concomitant]
  9. ALDACTONE [Concomitant]
  10. TYLENOL-500 [Concomitant]

REACTIONS (2)
  - RECTAL HAEMORRHAGE [None]
  - EPISTAXIS [None]
